FAERS Safety Report 8885880 (Version 1)
Quarter: 2012Q4

REPORT INFORMATION
  Report Type: 
  Country: JP (occurrence: JP)
  Receive Date: 20121102
  Receipt Date: 20121102
  Transmission Date: 20130627
  Serious: Yes (Life-Threatening)
  Sender: FDA-Public Use
  Company Number: JP-ABBOTT-12P-087-1003034-00

PATIENT
  Age: 64 Year
  Sex: Female

DRUGS (2)
  1. SEVORANE [Suspect]
     Indication: PRODUCT USED FOR UNKNOWN INDICATION
     Route: 055
  2. SEVORANE [Suspect]

REACTIONS (1)
  - Acute respiratory failure [Unknown]
